FAERS Safety Report 6666813-0 (Version None)
Quarter: 2010Q2

REPORT INFORMATION
  Report Type: 
  Country: None (occurrence: None)
  Receive Date: 20100405
  Receipt Date: 20100325
  Transmission Date: 20101027
  Serious: Yes (Other)
  Sender: FDA-Public Use
  Company Number: LB-JNJFOC-20100307990

PATIENT
  Age: 14 Year
  Sex: Male

DRUGS (4)
  1. TOPAMAX [Suspect]
     Indication: COMPLEX PARTIAL SEIZURES
     Route: 048
  2. TOPAMAX [Suspect]
     Route: 048
  3. VALPROIC ACID [Concomitant]
     Indication: COMPLEX PARTIAL SEIZURES
     Route: 065
  4. LAMOTRIGINE [Concomitant]
     Indication: COMPLEX PARTIAL SEIZURES
     Route: 065

REACTIONS (1)
  - PRIAPISM [None]
